FAERS Safety Report 21627039 (Version 1)
Quarter: 2022Q4

REPORT INFORMATION
  Report Type: Report from Study
  Country: GB (occurrence: GB)
  Receive Date: 20221122
  Receipt Date: 20221122
  Transmission Date: 20230113
  Serious: Yes (Hospitalization, Other)
  Sender: FDA-Public Use
  Company Number: GB-CELGENE-GBR-20210901902

PATIENT
  Age: 70 Year
  Sex: Male
  Weight: 65.5 kg

DRUGS (12)
  1. PACLITAXEL [Suspect]
     Active Substance: PACLITAXEL
     Indication: Pancreatic carcinoma metastatic
     Dosage: FREQUENCY TEXT: D 1, 8, 17 OF 28 DAY CYCLE?DURATION TEXT : CYCLE 5
     Route: 042
     Dates: start: 20210324, end: 20210818
  2. PACLITAXEL [Suspect]
     Active Substance: PACLITAXEL
     Dosage: FREQUENCY TEXT: NOT PROVIDED
     Route: 041
     Dates: start: 20210324, end: 20210818
  3. GEMCITABINE [Suspect]
     Active Substance: GEMCITABINE
     Indication: Pancreatic carcinoma metastatic
     Dosage: FREQUENCY TEXT: D 1, 8, 17 OF 28 DAY CYCLE?DURATION TEXT : CYCLE 5
     Route: 042
     Dates: start: 20210324, end: 20210818
  4. GEMCITABINE [Suspect]
     Active Substance: GEMCITABINE
     Dosage: FREQUENCY TEXT: NOT PROVIDED
     Route: 042
     Dates: start: 20210324, end: 20210818
  5. AMOXICILLIN\CLAVULANATE POTASSIUM [Concomitant]
     Active Substance: AMOXICILLIN\CLAVULANATE POTASSIUM
     Indication: Biliary tract infection
     Dosage: 3.6 GRAM
     Route: 042
     Dates: start: 20210825, end: 20210826
  6. INSULIN GLARGINE [Concomitant]
     Active Substance: INSULIN GLARGINE
     Indication: Diabetes mellitus
     Dosage: 100 IU (INTERNATIONAL UNIT)
     Route: 058
     Dates: start: 20090304
  7. AMLODIPINE [Concomitant]
     Active Substance: AMLODIPINE BESYLATE
     Indication: Hypertension
     Dosage: 10 MILLIGRAM
     Route: 048
     Dates: start: 20130125
  8. BENDROFLUMETHIAZIDE [Concomitant]
     Active Substance: BENDROFLUMETHIAZIDE
     Indication: Hypertension
     Dosage: 2.5 MILLIGRAM
     Route: 048
     Dates: start: 20130125
  9. FERROUS FUMARATE [Concomitant]
     Active Substance: FERROUS FUMARATE
     Indication: Iron deficiency anaemia
     Dosage: 420 MILLIGRAM
     Route: 048
     Dates: start: 20210203
  10. CREON [Concomitant]
     Active Substance: PANCRELIPASE AMYLASE\PANCRELIPASE LIPASE\PANCRELIPASE PROTEASE
     Indication: Pancreatic failure
     Dosage: 7500 MILLIGRAM
     Route: 048
     Dates: start: 20210203
  11. PANTOPRAZOLE [Concomitant]
     Active Substance: PANTOPRAZOLE
     Indication: Gastrooesophageal reflux disease
     Dosage: 80 MILLIGRAM
     Route: 048
     Dates: start: 20040209
  12. RAMIPRIL [Concomitant]
     Active Substance: RAMIPRIL
     Indication: Hypertension
     Dosage: 10 MILLIGRAM
     Route: 048
     Dates: start: 20130125

REACTIONS (1)
  - Embolism [Recovered/Resolved]

NARRATIVE: CASE EVENT DATE: 20210906
